FAERS Safety Report 24582026 (Version 1)
Quarter: 2024Q4

REPORT INFORMATION
  Report Type: Spontaneous
  Country: ZA (occurrence: ZA)
  Receive Date: 20241105
  Receipt Date: 20241105
  Transmission Date: 20250114
  Serious: Yes (Other)
  Sender: JOHNSON AND JOHNSON
  Company Number: ZA-BAYER-2024A157333

PATIENT
  Age: 79 Year
  Sex: Male

DRUGS (1)
  1. RIVAROXABAN [Suspect]
     Active Substance: RIVAROXABAN
     Indication: Atrial fibrillation
     Dosage: 20 MG
     Route: 048

REACTIONS (4)
  - Atrial fibrillation [Unknown]
  - COVID-19 [Unknown]
  - Sinus rhythm [Unknown]
  - Malaise [Unknown]
